FAERS Safety Report 5132830-5 (Version None)
Quarter: 2006Q4

REPORT INFORMATION
  Report Type: 
  Country: None (occurrence: None)
  Receive Date: 20061017
  Receipt Date: 20061012
  Transmission Date: 20070319
  Serious: Yes (Disabling)
  Sender: FDA-Public Use
  Company Number: AUWYE198612OCT06

PATIENT
  Age: 75 Year
  Sex: Female

DRUGS (7)
  1. EFFEXOR XR [Suspect]
     Indication: ANXIETY
     Dosage: 75 MG 1X PER 1 DAY ORAL
     Route: 048
     Dates: start: 20060801
  2. EFFEXOR XR [Suspect]
     Indication: DEPRESSION
     Dosage: 75 MG 1X PER 1 DAY ORAL
     Route: 048
     Dates: start: 20060801
  3. EFFEXOR XR [Suspect]
     Indication: PANIC ATTACK
     Dosage: 75 MG 1X PER 1 DAY ORAL
     Route: 048
     Dates: start: 20060801
  4. ASPRO (ACETYLSALICYLIC ACID) [Concomitant]
  5. XANAX [Concomitant]
  6. BETALOC (METOPROLOL TARTRATE) [Concomitant]
  7. LANOXIN [Concomitant]

REACTIONS (6)
  - ANOREXIA [None]
  - CONCOMITANT DISEASE AGGRAVATED [None]
  - FALL [None]
  - IRRITABLE BOWEL SYNDROME [None]
  - NAUSEA [None]
  - PATELLA FRACTURE [None]
